FAERS Safety Report 5661663-6 (Version None)
Quarter: 2008Q1

REPORT INFORMATION
  Report Type: 
  Country: None (occurrence: None)
  Receive Date: 20080312
  Receipt Date: 20080310
  Transmission Date: 20080703
  Serious: Yes (Death, Life-Threatening)
  Sender: FDA-Public Use
  Company Number: IN-BRISTOL-MYERS SQUIBB COMPANY-13882048

PATIENT
  Age: 50 Year
  Sex: Male
  Weight: 66 kg

DRUGS (25)
  1. CARBOPLATIN [Suspect]
     Indication: SMALL CELL LUNG CANCER METASTATIC
     Route: 042
     Dates: start: 20070806, end: 20070806
  2. ALIMTA [Suspect]
     Indication: SMALL CELL LUNG CANCER METASTATIC
     Route: 042
     Dates: start: 20070806, end: 20070806
  3. RICONIA [Concomitant]
     Dates: start: 20070728
  4. PANTOPRAZOLE SODIUM [Concomitant]
     Indication: GASTRITIS PROPHYLAXIS
     Dates: start: 20070728
  5. REGLAN [Concomitant]
     Indication: ANTIEMETIC SUPPORTIVE CARE
     Dates: start: 20070728
  6. THEOPHYLLINE [Concomitant]
     Dates: start: 20070728
  7. URSODIOL [Concomitant]
     Dates: start: 20070801
  8. ALLOPURINOL [Concomitant]
     Indication: HYPERURICAEMIA
     Dates: start: 20070801
  9. ATIVAN [Concomitant]
     Indication: SEDATIVE THERAPY
     Dates: start: 20070801
  10. TRANEXAMIC ACID [Concomitant]
     Dates: start: 20070801
  11. DUPHALAC [Concomitant]
     Indication: LAXATIVE SUPPORTIVE CARE
     Dates: start: 20070801
  12. SERENACE [Concomitant]
     Indication: SEDATIVE THERAPY
     Dates: start: 20070806, end: 20070809
  13. AUGMENTIN '125' [Concomitant]
     Indication: ANTI-INFECTIVE THERAPY
     Dates: start: 20070804, end: 20070808
  14. METRONIDAZOLE HCL [Concomitant]
     Indication: ANTI-INFECTIVE THERAPY
     Dates: start: 20070804, end: 20070808
  15. VITAMIN K [Concomitant]
     Indication: PROTHROMBIN TIME PROLONGED
     Dates: start: 20070808
  16. VITAMIN K [Concomitant]
     Indication: ACTIVATED PARTIAL THROMBOPLASTIN TIME
     Dates: start: 20070808
  17. FLUANXOL [Concomitant]
     Indication: ANTIDEPRESSANT THERAPY
     Dates: start: 20070804
  18. DICLOFENAC SODIUM [Concomitant]
     Indication: PAIN
     Dates: start: 20070728, end: 20070731
  19. DIAZEPAM [Concomitant]
     Indication: INSOMNIA
     Dates: start: 20070728, end: 20070731
  20. FOLIC ACID [Concomitant]
     Dates: start: 20070801
  21. VITAMIN B-12 [Concomitant]
     Dates: start: 20070731, end: 20070731
  22. DEXAMETHASONE TAB [Concomitant]
     Dates: start: 20070805, end: 20070807
  23. AMIKACIN [Concomitant]
     Indication: ANTI-INFECTIVE THERAPY
     Dates: start: 20070804, end: 20070808
  24. CHLORHEXIDINE GLUCONATE [Concomitant]
  25. DUOLIN [Concomitant]
     Dates: start: 20070804

REACTIONS (2)
  - ACUTE LEFT VENTRICULAR FAILURE [None]
  - ACUTE RESPIRATORY DISTRESS SYNDROME [None]
